FAERS Safety Report 17009279 (Version 2)
Quarter: 2019Q4

REPORT INFORMATION
  Report Type: Report from Study
  Country: US (occurrence: US)
  Receive Date: 20191108
  Receipt Date: 20191127
  Transmission Date: 20200122
  Serious: Yes (Hospitalization, Other)
  Sender: FDA-Public Use
  Company Number: US-GLAXOSMITHKLINE-US2019GSK201276

PATIENT
  Age: 34 Year
  Sex: Male
  Weight: 106 kg

DRUGS (9)
  1. ALEMTUZUMAB [Concomitant]
     Active Substance: ALEMTUZUMAB
     Dosage: 30 MG, QD
     Dates: start: 20190904
  2. BELIMUMAB [Suspect]
     Active Substance: BELIMUMAB
     Indication: RENAL TRANSPLANT
     Dosage: 1075 MG, QD
     Route: 042
     Dates: start: 20190904, end: 20191004
  3. DEXAMETHASONE. [Concomitant]
     Active Substance: DEXAMETHASONE
     Dosage: UNK
     Dates: start: 20190904, end: 20190907
  4. ENVARSUS XR [Concomitant]
     Active Substance: TACROLIMUS
     Dosage: 7 MG, QD
     Dates: start: 20191023
  5. DARBEPOETIN ALFA [Concomitant]
     Active Substance: DARBEPOETIN ALFA
     Dosage: 150 ?G, QD
     Dates: start: 20191023
  6. EPOETIN ALFA-EPBX. [Concomitant]
     Active Substance: EPOETIN ALFA-EPBX
     Dosage: UNK
     Dates: start: 20191023
  7. CEPHALEXIN. [Concomitant]
     Active Substance: CEPHALEXIN
     Dosage: 500 MG, BID
     Dates: start: 20191023
  8. MYCOPHENOLATE [Concomitant]
     Active Substance: MYCOPHENOLIC ACID
     Dosage: 720 MG, BID
     Dates: start: 20190904
  9. PREDNISONE. [Concomitant]
     Active Substance: PREDNISONE
     Dosage: 10 MG, QD
     Dates: start: 20191023

REACTIONS (3)
  - Urinary tract infection [Recovered/Resolved]
  - Seroma [Recovered/Resolved]
  - Pneumonia klebsiella [Recovered/Resolved]

NARRATIVE: CASE EVENT DATE: 20191016
